FAERS Safety Report 9205837 (Version 2)
Quarter: 2013Q3

REPORT INFORMATION
  Report Type: Spontaneous
  Country: GB (occurrence: None)
  Receive Date: 20130401
  Receipt Date: 20130820
  Transmission Date: 20140515
  Serious: Yes (Other)
  Sender: FDA-Public Use
  Company Number: 2013MPI00137

PATIENT
  Age: 25 Year
  Sex: Male

DRUGS (1)
  1. ADCETRIS [Suspect]
     Indication: HODGKIN^S DISEASE
     Dates: start: 20110822

REACTIONS (5)
  - Biopsy liver abnormal [None]
  - Liver function test abnormal [None]
  - Graft versus host disease [None]
  - Thrombocytopenia [None]
  - Weight decreased [None]
